FAERS Safety Report 16365663 (Version 2)
Quarter: 2019Q2

REPORT INFORMATION
  Report Type: Spontaneous
  Country: JP (occurrence: JP)
  Receive Date: 20190529
  Receipt Date: 20190627
  Transmission Date: 20190711
  Serious: Yes (Life-Threatening, Hospitalization)
  Sender: FDA-Public Use
  Company Number: JP-ROCHE-2288128

PATIENT
  Age: 64 Year
  Sex: Male
  Weight: 94 kg

DRUGS (7)
  1. ALLEGRA [Concomitant]
     Active Substance: FEXOFENADINE HYDROCHLORIDE
     Dosage: DOSE PER ADMINISTRATION: 60 (UNKNOWN UNIT)
     Route: 048
  2. LIXIANA [Concomitant]
     Active Substance: EDOXABAN TOSYLATE
     Dosage: DOSE PER ADMINISTRATION: 30 (UNKNOWN UNIT)
     Route: 048
  3. CARERAM [Suspect]
     Active Substance: IGURATIMOD
     Indication: PRODUCT USED FOR UNKNOWN INDICATION
     Route: 065
  4. MAINTATE [Concomitant]
     Active Substance: BISOPROLOL FUMARATE
     Dosage: DOSE PER ADMINISTRATION: 2.5 (UNKNOWN UNIT)
     Route: 048
  5. ACTEMRA [Suspect]
     Active Substance: TOCILIZUMAB
     Indication: RHEUMATOID ARTHRITIS
     Route: 041
     Dates: start: 20160912
  6. OLMETEC [Concomitant]
     Active Substance: OLMESARTAN MEDOXOMIL
     Dosage: DOSE PER ADMINISTRATION: 20 (UNKNOWN UNIT)
     Route: 048
  7. EPADEL [EICOSAPENTAENOIC ACID ETHYL ESTER] [Concomitant]
     Dosage: DOSE PER ADMINISTRATION: 900 (UNKNOWN UNIT)
     Route: 048

REACTIONS (5)
  - Pyelonephritis [Recovering/Resolving]
  - Ureterolithiasis [Unknown]
  - Ovarian rupture [Recovering/Resolving]
  - Ovarian cyst [Recovering/Resolving]
  - Influenza A virus test positive [Unknown]

NARRATIVE: CASE EVENT DATE: 20180711
